FAERS Safety Report 5060659-5 (Version None)
Quarter: 2006Q3

REPORT INFORMATION
  Report Type: 
  Country: None (occurrence: None)
  Receive Date: 20060720
  Receipt Date: 20060710
  Transmission Date: 20061208
  Serious: Yes (Hospitalization, Other)
  Sender: FDA-Public Use
  Company Number: 2006086870

PATIENT
  Age: 63 Year
  Sex: Male

DRUGS (11)
  1. CORTEF [Suspect]
     Indication: PITUITARY TUMOUR
     Dosage: 65 MG (65 MG, 1 IN 1 D) ORAL
     Route: 048
     Dates: start: 20060201
  2. VANCOMYCIN [Suspect]
     Indication: MENINGITIS BACTERIAL
     Dates: start: 20060301
  3. ALL OTHER THERAPEUTIC PRODUCTS (ALL OTHER THERAPEUTIC PRODUCTS) [Suspect]
     Indication: MENINGITIS BACTERIAL
     Dates: start: 20060401
  4. LEVOTHYROXINE SODIUM [Suspect]
     Indication: HYPOTHYROIDISM
     Dates: start: 20060301
  5. SYNTHROID [Concomitant]
  6. TAMSULOSIN HYDROCHLORIDE [Concomitant]
  7. MAGNESIUM [Concomitant]
  8. ALL OTHER THERAPEUTIC PRODUCTS [Concomitant]
  9. VITAMIN E [Concomitant]
  10. NEXIUM [Concomitant]
  11. IBUPROFEN [Concomitant]

REACTIONS (9)
  - ABDOMINAL PAIN UPPER [None]
  - ADRENOCORTICAL INSUFFICIENCY ACUTE [None]
  - AMNESIA [None]
  - BLINDNESS [None]
  - DRUG INEFFECTIVE [None]
  - HYPOTHYROIDISM [None]
  - LOSS OF CONSCIOUSNESS [None]
  - MENINGITIS BACTERIAL [None]
  - WEIGHT DECREASED [None]
